FAERS Safety Report 4375532-5 (Version None)
Quarter: 2004Q2

REPORT INFORMATION
  Report Type: 
  Country: None (occurrence: None)
  Receive Date: 20040610
  Receipt Date: 20040602
  Transmission Date: 20050107
  Serious: Yes (Death, Hospitalization)
  Sender: FDA-Public Use
  Company Number: LU-AMGEN-US079251

PATIENT
  Sex: Female

DRUGS (4)
  1. ENBREL [Suspect]
     Indication: RHEUMATOID ARTHRITIS
     Route: 058
     Dates: start: 19990925
  2. PREDNISOLONE [Concomitant]
     Dates: start: 19960101
  3. CELEBREX [Concomitant]
     Dates: start: 20020101
  4. FOSAMAX [Concomitant]
     Dates: start: 19960101

REACTIONS (1)
  - PANCREATIC CARCINOMA [None]
